FAERS Safety Report 20137428 (Version 1)
Quarter: 2021Q4

REPORT INFORMATION
  Report Type: Spontaneous
  Country: GB (occurrence: GB)
  Receive Date: 20211201
  Receipt Date: 20211201
  Transmission Date: 20220303
  Serious: Yes (Other)
  Sender: FDA-Public Use
  Company Number: GB-MHRA-TPP19184962C7812074YC1637335100774

PATIENT
  Age: 36 Year
  Sex: Male
  Weight: 84 kg

DRUGS (1)
  1. IBUPROFEN [Suspect]
     Active Substance: IBUPROFEN
     Indication: Product used for unknown indication
     Dosage: 200 MILLIGRAM
     Route: 048
     Dates: start: 20200501

REACTIONS (2)
  - Oropharyngeal swelling [Recovered/Resolved]
  - Swelling face [Unknown]
